FAERS Safety Report 23595834 (Version 6)
Quarter: 2024Q2

REPORT INFORMATION
  Report Type: Spontaneous
  Country: US (occurrence: US)
  Receive Date: 20240305
  Receipt Date: 20240504
  Transmission Date: 20240716
  Serious: No
  Sender: FDA-Public Use
  Company Number: US-002147023-NVSC2024US046355

PATIENT
  Age: 73 Year

DRUGS (5)
  1. VALSARTAN [Suspect]
     Active Substance: VALSARTAN
     Indication: Systolic hypertension
     Dosage: 160 MG, QD (7 WEEKS AGO)
     Route: 065
  2. VALSARTAN [Suspect]
     Active Substance: VALSARTAN
     Dosage: 160 MG, BID
     Route: 065
  3. AMLODIPINE [Concomitant]
     Active Substance: AMLODIPINE BESYLATE
     Indication: Systolic hypertension
     Dosage: UNK
     Route: 065
  4. LOTREL [Concomitant]
     Active Substance: AMLODIPINE BESYLATE\BENAZEPRIL HYDROCHLORIDE
     Indication: Systolic hypertension
     Dosage: UNK (AMLODIPINE 5 MG AND BENZAPRIL 10 MG)
     Route: 065
  5. BENAZEPRIL [Concomitant]
     Active Substance: BENAZEPRIL HYDROCHLORIDE
     Indication: Systolic hypertension
     Dosage: UNK
     Route: 065

REACTIONS (6)
  - Blood pressure systolic increased [Unknown]
  - Blood pressure diastolic increased [Unknown]
  - Anxiety [Unknown]
  - Drug ineffective [Unknown]
  - Fatigue [Unknown]
  - Palpitations [Unknown]
